FAERS Safety Report 6495472-5 (Version None)
Quarter: 2009Q4

REPORT INFORMATION
  Report Type: 
  Country: None (occurrence: None)
  Receive Date: 20091214
  Receipt Date: 20090626
  Transmission Date: 20100525
  Serious: No
  Sender: FDA-Public Use
  Company Number: US-BRISTOL-MYERS SQUIBB COMPANY-14682108

PATIENT
  Age: 47 Year
  Sex: Female
  Weight: 64 kg

DRUGS (7)
  1. ABILIFY [Suspect]
     Indication: DEPRESSION
     Dates: start: 20090613
  2. TRAMADOL HCL [Suspect]
     Dates: start: 20090613
  3. CELEBREX [Concomitant]
  4. IRON [Concomitant]
  5. XANAX [Concomitant]
  6. AMOXICILLIN [Concomitant]
  7. PEPTO-BISMOL [Concomitant]

REACTIONS (1)
  - DIZZINESS [None]
